FAERS Safety Report 10402895 (Version 3)
Quarter: 2015Q1

REPORT INFORMATION
  Report Type: Report from Study
  Country: US (occurrence: US)
  Receive Date: 20140822
  Receipt Date: 20150123
  Transmission Date: 20150720
  Serious: Yes (Hospitalization, Other)
  Sender: FDA-Public Use
  Company Number: PHEH2013US023818

PATIENT
  Sex: Male

DRUGS (3)
  1. VITAMIN B12 [Concomitant]
     Active Substance: CYANOCOBALAMIN
     Indication: PRODUCT USED FOR UNKNOWN INDICATION
  2. GILENYA [Suspect]
     Active Substance: FINGOLIMOD HYDROCHLORIDE
     Dosage: 0.5 MG, QD
     Route: 048
  3. GILENYA [Suspect]
     Active Substance: FINGOLIMOD HYDROCHLORIDE
     Indication: MULTIPLE SCLEROSIS
     Dosage: 0.5 MG, QD
     Route: 048
     Dates: start: 20131007, end: 20131225

REACTIONS (8)
  - Pyrexia [Unknown]
  - Pneumonia [Unknown]
  - Fungal infection [Not Recovered/Not Resolved]
  - Heart rate decreased [Unknown]
  - Impaired healing [Not Recovered/Not Resolved]
  - Appendix disorder [Unknown]
  - Localised infection [Not Recovered/Not Resolved]
  - Wound infection [Unknown]
